FAERS Safety Report 6883991-9 (Version None)
Quarter: 2010Q3

REPORT INFORMATION
  Report Type: 
  Country: None (occurrence: None)
  Receive Date: 20100729
  Receipt Date: 20100726
  Transmission Date: 20110219
  Serious: Yes (Other)
  Sender: FDA-Public Use
  Company Number: US-GILEAD-2010-0029820

PATIENT
  Sex: Female

DRUGS (10)
  1. LETAIRIS [Suspect]
     Indication: COR PULMONALE CHRONIC
     Route: 048
     Dates: start: 20090512
  2. REVATIO [Concomitant]
  3. LASIX [Concomitant]
  4. POTASSIUM [Concomitant]
  5. FERROUS SULFATE [Concomitant]
  6. PREDNISONE [Concomitant]
  7. VITAMIN D [Concomitant]
  8. MULTI-VITAMIN [Concomitant]
  9. QUININE [Concomitant]
  10. ZANTAC [Concomitant]

REACTIONS (1)
  - HAEMORRHAGE [None]
